FAERS Safety Report 7654849-2 (Version None)
Quarter: 2011Q3

REPORT INFORMATION
  Report Type: 
  Country: None (occurrence: None)
  Receive Date: 20110729
  Receipt Date: 20110722
  Transmission Date: 20111222
  Serious: Yes (Death)
  Sender: FDA-Public Use
  Company Number: 2010SP002971

PATIENT
  Sex: Male

DRUGS (1)
  1. SAPHRIS [Suspect]
     Indication: BIPOLAR DISORDER
     Dates: start: 20091223, end: 20091224

REACTIONS (3)
  - ASPHYXIA [None]
  - RESPIRATORY ARREST [None]
  - INTENTIONAL SELF-INJURY [None]
